FAERS Safety Report 10130343 (Version 4)
Quarter: 2014Q2

REPORT INFORMATION
  Report Type: Spontaneous
  Country: BR (occurrence: BR)
  Receive Date: 20140428
  Receipt Date: 20140617
  Transmission Date: 20141212
  Serious: Yes (Other)
  Sender: FDA-Public Use
  Company Number: BR-SA-2014SA049824

PATIENT
  Sex: Male
  Weight: 84 kg

DRUGS (3)
  1. LANTUS [Suspect]
     Indication: TYPE 2 DIABETES MELLITUS
     Route: 058
     Dates: start: 201310
  2. LANTUS [Suspect]
     Indication: TYPE 2 DIABETES MELLITUS
     Route: 058
  3. CLIKSTAR [Concomitant]
     Indication: DEVICE THERAPY
     Dates: start: 201310

REACTIONS (2)
  - Osteitis [Recovered/Resolved]
  - Diabetes mellitus [Recovering/Resolving]
